FAERS Safety Report 15385652 (Version 1)
Quarter: 2018Q3

REPORT INFORMATION
  Report Type: Spontaneous
  Country: DE (occurrence: DE)
  Receive Date: 20180914
  Receipt Date: 20180914
  Transmission Date: 20181010
  Serious: Yes (Congenital Anomaly, Other)
  Sender: FDA-Public Use
  Company Number: DE-TORRENT-00009945

PATIENT
  Sex: Male

DRUGS (9)
  1. LAMOTRIGIN [Suspect]
     Active Substance: LAMOTRIGINE
     Indication: EPILEPSY
     Dosage: 100 [MG/D ]/ 50 TO 100 MG/D
     Route: 064
     Dates: start: 20171209, end: 20180504
  2. METOPROLOL SUCCINATE. [Suspect]
     Active Substance: METOPROLOL SUCCINATE
     Indication: HYPERTENSION
     Dosage: 190 [MG/D ]/ INITIA 2 X 95MG/D, THEN DOSAGE DECREASE TO 2 X 47.5MG/D
     Route: 064
     Dates: start: 20171209, end: 20180504
  3. NEPRESOL (DIHYDRALAZINE SULFATE) [Suspect]
     Active Substance: DIHYDRALAZINE SULFATE
     Indication: HYPERTENSION
     Dosage: 50 [MG/D ]
     Route: 064
     Dates: start: 20171209, end: 20180504
  4. CANDESARTAN. [Suspect]
     Active Substance: CANDESARTAN
     Indication: HYPERTENSION
     Dosage: 32 [MG/D ]
     Route: 064
  5. TORASEMID [Concomitant]
     Active Substance: TORSEMIDE
     Indication: HYPERTENSION
     Dosage: UNKNOWN
     Route: 064
  6. MIFEGYNE [Concomitant]
     Active Substance: MIFEPRISTONE
     Indication: ABORTION INDUCED
     Dosage: UNKNOWN
     Route: 064
     Dates: start: 20180502, end: 20180503
  7. DORZOLAMIDE [Concomitant]
     Active Substance: DORZOLAMIDE
     Indication: GLAUCOMA
     Dosage: UNKNOWN
     Route: 064
  8. PANTOPRAZOL [Suspect]
     Active Substance: PANTOPRAZOLE SODIUM
     Indication: GASTRITIS PROPHYLAXIS
     Dosage: 40 [MG/D ]
     Route: 064
  9. CERGEM [Concomitant]
     Active Substance: GEMEPROST
     Indication: ABORTION INDUCED
     Dosage: UNKNOWN
     Route: 064
     Dates: start: 20180502, end: 20180503

REACTIONS (7)
  - Congenital muscle absence [Not Recovered/Not Resolved]
  - Pulmonary hypoplasia [Not Recovered/Not Resolved]
  - Joint contracture [Not Recovered/Not Resolved]
  - Potter^s syndrome [Not Recovered/Not Resolved]
  - Foetal exposure during pregnancy [Unknown]
  - Single umbilical artery [Not Recovered/Not Resolved]
  - Congenital vas deferens absence [Not Recovered/Not Resolved]
